FAERS Safety Report 15172368 (Version 1)
Quarter: 2018Q3

REPORT INFORMATION
  Report Type: Spontaneous
  Country: GB (occurrence: FR)
  Receive Date: 20180720
  Receipt Date: 20180720
  Transmission Date: 20181010
  Serious: Yes (Hospitalization)
  Sender: FDA-Public Use
  Company Number: FR-FRESENIUS KABI-FK201807941

PATIENT
  Age: 56 Year
  Sex: Male

DRUGS (5)
  1. PROPOFOL (MANUFACTURER UNKNOWN) [Suspect]
     Active Substance: PROPOFOL
     Indication: SURGERY
     Route: 042
     Dates: start: 20171218, end: 20171218
  2. MIDAZOLAM [Suspect]
     Active Substance: MIDAZOLAM HYDROCHLORIDE
     Indication: SURGERY
     Route: 042
     Dates: start: 20171218, end: 20171218
  3. RANITIDINE. [Suspect]
     Active Substance: RANITIDINE
     Indication: SURGERY
     Route: 065
     Dates: start: 20171218, end: 20171218
  4. SUFENTA [Suspect]
     Active Substance: SUFENTANIL CITRATE
     Indication: SURGERY
     Route: 042
     Dates: start: 20171218, end: 20171218
  5. ETOMIDATE. [Suspect]
     Active Substance: ETOMIDATE
     Indication: SURGERY
     Route: 042
     Dates: start: 20171218, end: 20171218

REACTIONS (1)
  - Anaphylactic reaction [Recovered/Resolved]

NARRATIVE: CASE EVENT DATE: 20171218
